FAERS Safety Report 9435071 (Version 1)
Quarter: 2013Q3

REPORT INFORMATION
  Report Type: Report from Study
  Country: HU (occurrence: HU)
  Receive Date: 20130801
  Receipt Date: 20130801
  Transmission Date: 20140515
  Serious: Yes (Death, Hospitalization)
  Sender: FDA-Public Use
  Company Number: HU-SANOFI-AVENTIS-2013SA056343

PATIENT
  Age: 75 Year
  Sex: Female

DRUGS (7)
  1. DOCETAXEL [Suspect]
     Indication: BREAST CANCER
     Route: 042
     Dates: start: 20130322, end: 20130531
  2. CAPECITABINE [Suspect]
     Indication: BREAST CANCER
     Dosage: DOSE: 3000?FREQ: 2 WEEKS ON + 2 WEEKS OFF
     Route: 048
     Dates: start: 20130322, end: 20130531
  3. IBANDRONIC ACID [Concomitant]
     Indication: BREAST CANCER
     Route: 048
     Dates: start: 2011
  4. PROPAFENONE [Concomitant]
     Indication: HYPERTONIA
     Route: 048
  5. LOKREN [Concomitant]
     Indication: HYPERTONIA
     Route: 048
  6. ASPIRIN [Concomitant]
     Indication: HYPERTONIA
     Route: 048
  7. LETROZOLE [Concomitant]
     Indication: BREAST CANCER
     Route: 048
     Dates: start: 2011

REACTIONS (1)
  - Neutropenia [Fatal]
